FAERS Safety Report 7647147-4 (Version None)
Quarter: 2011Q3

REPORT INFORMATION
  Report Type: 
  Country: None (occurrence: None)
  Receive Date: 20110801
  Receipt Date: 20110713
  Transmission Date: 20111222
  Serious: Yes (Hospitalization, Other)
  Sender: FDA-Public Use
  Company Number: US-BAYER-2011-011770

PATIENT
  Age: 30 Year
  Sex: Female
  Weight: 90.249 kg

DRUGS (18)
  1. LEXAPRO [Concomitant]
     Indication: ANXIETY
     Dosage: 10 MG, QD
     Dates: start: 20090313
  2. MEPROZINE [Concomitant]
     Dosage: UNK
  3. MEPROZINE [Concomitant]
  4. METHYLPREDNISOLONE ACETATE [Concomitant]
     Dosage: 4 MG, UNK
     Route: 048
     Dates: start: 20090120
  5. PROMETHAZINE [Concomitant]
     Dosage: UNK
     Dates: start: 20080101
  6. LEXAPRO [Concomitant]
     Indication: DEPRESSION
  7. CLONAZEPAM [Concomitant]
     Dosage: 0.5 MG, UNK
     Route: 048
     Dates: start: 20080101
  8. PENICILLIN VK [Concomitant]
     Dosage: 500 MG, UNK
     Route: 048
     Dates: start: 20090120
  9. ZOLOFT [Concomitant]
     Indication: ANXIETY
     Dosage: UNK
     Dates: start: 20090101
  10. ZOLOFT [Concomitant]
     Indication: DEPRESSION
  11. MEPROZINE [Concomitant]
     Dosage: UNK
     Route: 048
     Dates: start: 20080101
  12. MEPROZINE [Concomitant]
  13. HYDROCODONE BITARTRATE [Concomitant]
     Dosage: UNK
     Dates: start: 20080101
  14. YAZ [Suspect]
     Indication: CONTRACEPTION
     Dosage: UNK
     Dates: start: 20070101, end: 20090101
  15. PHENTERMINE [Concomitant]
     Dosage: UNK
     Dates: start: 20080101
  16. YAZ [Suspect]
     Indication: PREMENSTRUAL SYNDROME
  17. MEPROZINE [Concomitant]
  18. CLINDAMYCIN [Concomitant]
     Dosage: 150 MG, UNK
     Route: 048
     Dates: start: 20090202

REACTIONS (3)
  - PAIN [None]
  - CHOLECYSTITIS CHRONIC [None]
  - GALLBLADDER DISORDER [None]
